FAERS Safety Report 7205132-0 (Version None)
Quarter: 2010Q4

REPORT INFORMATION
  Report Type: 
  Country: None (occurrence: None)
  Receive Date: 20101231
  Receipt Date: 20101217
  Transmission Date: 20110411
  Serious: Yes (Hospitalization, Other)
  Sender: FDA-Public Use
  Company Number: DK-RANBAXY-2010RR-40659

PATIENT
  Age: 57 Year
  Sex: Female

DRUGS (1)
  1. SIMVASTATIN [Suspect]
     Indication: ACCIDENTAL OVERDOSE
     Dosage: UNK

REACTIONS (3)
  - ACCIDENTAL OVERDOSE [None]
  - MUSCULAR WEAKNESS [None]
  - RHABDOMYOLYSIS [None]
